FAERS Safety Report 5031184-2 (Version None)
Quarter: 2006Q2

REPORT INFORMATION
  Report Type: 
  Country: None (occurrence: None)
  Receive Date: 20060619
  Receipt Date: 20060619
  Transmission Date: 20061013
  Serious: No
  Sender: FDA-Public Use
  Company Number: None

PATIENT
  Sex: Male
  Weight: 70.76 kg

DRUGS (13)
  1. TEMOZOLOMIDE [Suspect]
     Dosage: 4900 MG
  2. ASACOL [Concomitant]
  3. ASPIRIN [Concomitant]
  4. CADUCT [Concomitant]
  5. CELEBREX [Concomitant]
  6. DECADRON [Concomitant]
  7. IRON [Concomitant]
  8. KYTRIL [Concomitant]
  9. LISINOPRIL [Concomitant]
  10. LYRICA [Concomitant]
  11. MULTI-VITAMIN [Concomitant]
  12. ASCORBIC ACID [Concomitant]
  13. ZETIA [Concomitant]

REACTIONS (2)
  - PLATELET COUNT INCREASED [None]
  - THROMBOCYTOPENIA [None]
